FAERS Safety Report 9896183 (Version 1)
Quarter: 2014Q1

REPORT INFORMATION
  Report Type: Spontaneous
  Country: US (occurrence: US)
  Receive Date: 20140213
  Receipt Date: 20140213
  Transmission Date: 20141002
  Serious: No
  Sender: FDA-Public Use
  Company Number: US-BRISTOL-MYERS SQUIBB COMPANY-17323213

PATIENT
  Age: 40 Year
  Sex: Female

DRUGS (5)
  1. ABATACEPT SUBQ INJECTION 125MG/ML [Suspect]
     Dosage: ON ORENCIA :AUG-RECENTLY
     Route: 058
  2. METHOTREXATE [Concomitant]
     Dosage: TAB
  3. VITAMIN C [Concomitant]
     Dosage: CAP
  4. MULTIVITAMIN [Concomitant]
     Dosage: CAP
  5. FOLIC ACID [Concomitant]
     Dosage: TAB

REACTIONS (1)
  - Myalgia [Unknown]
